FAERS Safety Report 9705372 (Version 4)
Quarter: 2025Q1

REPORT INFORMATION
  Report Type: Spontaneous
  Country: ES (occurrence: ES)
  Receive Date: 20131122
  Receipt Date: 20250102
  Transmission Date: 20250408
  Serious: Yes (Hospitalization, Other)
  Sender: MYLAN
  Company Number: ES-PFIZER INC-2013334498

PATIENT
  Age: 47 Year
  Sex: Male

DRUGS (7)
  1. PHENYTOIN [Suspect]
     Active Substance: PHENYTOIN
     Indication: Partial seizures
     Dosage: 100 MG, 3X/DAY, LAST 7 YEARS REGIMEN DOSE UNIT: MILLIGRAM
     Route: 065
     Dates: start: 2003, end: 2009
  2. PHENYTOIN [Suspect]
     Active Substance: PHENYTOIN
     Indication: Focal dyscognitive seizures
  3. LAMOTRIGINE [Suspect]
     Active Substance: LAMOTRIGINE
     Indication: Partial seizures
     Dosage: 100 MG, 2X/DAY LAST 7 YEARS REGIMEN DOSE UNIT: MILLIGRAM
     Route: 065
     Dates: start: 2003, end: 2009
  4. LAMOTRIGINE [Suspect]
     Active Substance: LAMOTRIGINE
     Indication: Focal dyscognitive seizures
  5. CLOBAZAM [Suspect]
     Active Substance: CLOBAZAM
     Indication: Partial seizures
     Dosage: 10 MG, QD || DOSE UNIT FREQUENCY: 10 MG-MILLIGRAMS || DOSE PER  INTAKE: 10 MG-MILLIGRAMS || N? OF
     Route: 065
     Dates: start: 2007
  6. CLOBAZAM [Suspect]
     Active Substance: CLOBAZAM
     Indication: Focal dyscognitive seizures
  7. CLOBAZAM [Suspect]
     Active Substance: CLOBAZAM
     Indication: Anxiety

REACTIONS (10)
  - Renal failure [Recovered/Resolved]
  - Tubulointerstitial nephritis [Recovered/Resolved]
  - Oliguria [Recovered/Resolved]
  - Oedema [Recovered/Resolved]
  - Abdominal pain [Recovered/Resolved]
  - Gastrointestinal inflammation [Recovered/Resolved]
  - Drug reaction with eosinophilia and systemic symptoms [Recovered/Resolved]
  - Hepatic function abnormal [Recovered/Resolved]
  - Nausea [Recovered/Resolved]
  - Vomiting [Recovered/Resolved]

NARRATIVE: CASE EVENT DATE: 20090101
